FAERS Safety Report 9111624 (Version 1)
Quarter: 2013Q1

REPORT INFORMATION
  Report Type: Spontaneous
  Country: US (occurrence: US)
  Receive Date: 20130219
  Receipt Date: 20130219
  Transmission Date: 20140127
  Serious: No
  Sender: FDA-Public Use
  Company Number: US-BRISTOL-MYERS SQUIBB COMPANY-16553075

PATIENT
  Age: 56 Year
  Sex: Female
  Weight: 89.79 kg

DRUGS (1)
  1. ORENCIA [Suspect]
     Indication: RHEUMATOID ARTHRITIS
     Dosage: PRESCRIPTION #:6809695,ORENCIA PRE-FILLED SYRINGE,PREVIOUSLY THRO IV ROUTE 750MG, 5TH INJ 24APR12:
     Route: 058

REACTIONS (1)
  - Asthenia [Unknown]
